FAERS Safety Report 14558745 (Version 3)
Quarter: 2018Q1

REPORT INFORMATION
  Report Type: Spontaneous
  Country: BE (occurrence: BE)
  Receive Date: 20180221
  Receipt Date: 20180313
  Transmission Date: 20180509
  Serious: Yes (Other)
  Sender: FDA-Public Use
  Company Number: BE-JNJFOC-20180226851

PATIENT
  Sex: Female
  Weight: 124 kg

DRUGS (2)
  1. SERTRALINE [Concomitant]
     Active Substance: SERTRALINE HYDROCHLORIDE
     Route: 065
     Dates: start: 201603
  2. STELARA [Suspect]
     Active Substance: USTEKINUMAB
     Indication: PSORIASIS
     Dosage: THE PATIENT APPROXIMATELY RECEIVED 16 INJECTIONS
     Route: 058
     Dates: start: 20140710, end: 20171127

REACTIONS (1)
  - Vulvar dysplasia [Unknown]

NARRATIVE: CASE EVENT DATE: 2018
